FAERS Safety Report 7951934-2 (Version None)
Quarter: 2011Q4

REPORT INFORMATION
  Report Type: 
  Country: None (occurrence: None)
  Receive Date: 20111201
  Receipt Date: 20111121
  Transmission Date: 20120403
  Serious: Yes (Hospitalization)
  Sender: FDA-Public Use
  Company Number: IT-SANOFI-AVENTIS-F01200801841

PATIENT
  Age: 76 Year
  Sex: Male
  Weight: 92 kg

DRUGS (6)
  1. HYDROCHLOROTHIAZIDE [Concomitant]
  2. LEUPROLIDE ACETATE [Suspect]
     Indication: PROSTATE CANCER
     Dosage: UNIT DOSE: 22.5 MG
     Route: 058
     Dates: start: 20070208
  3. BICALUTAMIDE [Suspect]
     Indication: PROSTATE CANCER
     Route: 048
     Dates: start: 20070208
  4. CANDESARTAN CILEXETIL [Concomitant]
  5. ALLOPURINOL [Concomitant]
  6. BICALUTAMIDE [Suspect]
     Route: 048
     Dates: start: 20071025, end: 20071123

REACTIONS (1)
  - CORONARY ARTERY DISEASE [None]
